FAERS Safety Report 9622483 (Version 7)
Quarter: 2014Q1

REPORT INFORMATION
  Report Type: Spontaneous
  Country: IT (occurrence: IT)
  Receive Date: 20131015
  Receipt Date: 20140115
  Transmission Date: 20141002
  Serious: Yes (Hospitalization)
  Sender: FDA-Public Use
  Company Number: IT-PFIZER INC-2013292986

PATIENT
  Age: 51 Year
  Sex: Male
  Weight: 85 kg

DRUGS (9)
  1. ADRIBLASTINA [Suspect]
     Indication: NON-HODGKIN^S LYMPHOMA
     Dosage: 100 MG, CYCLIC
     Route: 042
     Dates: start: 201308, end: 20130828
  2. MABTHERA [Suspect]
     Indication: NON-HODGKIN^S LYMPHOMA
     Dosage: 37.5 MG, CYCLIC
     Route: 042
     Dates: start: 201308, end: 20130827
  3. VINCRISTINA TEVA ITALIA [Suspect]
     Indication: NON-HODGKIN^S LYMPHOMA
     Dosage: 2 MG, CYCLIC
     Route: 042
     Dates: start: 201308, end: 20130828
  4. ENDOXAN-BAXTER [Suspect]
     Indication: NON-HODGKIN^S LYMPHOMA
     Dosage: 1500 MG, CYCLIC
     Route: 042
     Dates: start: 201308, end: 20130828
  5. PREDNISONE [Suspect]
     Indication: NON-HODGKIN^S LYMPHOMA
     Dosage: UNK
     Dates: start: 201308
  6. EPIVIR [Concomitant]
     Indication: HIV INFECTION
     Dosage: 300 MG, UNK
     Route: 048
     Dates: start: 20121111, end: 20130905
  7. ISENTRESS [Concomitant]
     Indication: HIV INFECTION
     Dosage: 800 MG, UNK
     Route: 048
     Dates: start: 20121111, end: 20130905
  8. PREZISTA [Concomitant]
     Indication: HIV INFECTION
     Dosage: 400 MG, UNK
     Route: 048
     Dates: start: 20121111, end: 20130905
  9. NORVIR [Concomitant]
     Indication: HIV INFECTION
     Dosage: 100 MG, UNK
     Route: 048
     Dates: start: 20121111, end: 20130905

REACTIONS (5)
  - Large intestinal obstruction [Recovering/Resolving]
  - Febrile neutropenia [Recovering/Resolving]
  - Hyperbilirubinaemia [Recovering/Resolving]
  - Thrombocytopenia [Recovering/Resolving]
  - Encephalopathy [Recovered/Resolved]
